FAERS Safety Report 9577367 (Version 1)
Quarter: 2013Q4

REPORT INFORMATION
  Report Type: Spontaneous
  Country: US (occurrence: US)
  Receive Date: 20131001
  Receipt Date: 20131001
  Transmission Date: 20140711
  Serious: No
  Sender: FDA-Public Use
  Company Number: US-AMGEN-USASP2013007500

PATIENT
  Sex: Female
  Weight: 72.56 kg

DRUGS (5)
  1. ENBREL [Suspect]
     Indication: PSORIASIS
     Dosage: 50 MG, 2 TIMES/WK
     Route: 058
  2. ENBREL [Suspect]
     Indication: PSORIATIC ARTHROPATHY
  3. CENTRUM SILVER                     /02363801/ [Concomitant]
     Dosage: UNK
  4. ULTRACET [Concomitant]
     Dosage: 37.5-325
  5. SULINDAC [Concomitant]
     Dosage: 150 MG, UNK

REACTIONS (1)
  - Therapeutic response decreased [Unknown]
